FAERS Safety Report 13234342 (Version 1)
Quarter: 2017Q1

REPORT INFORMATION
  Report Type: Spontaneous
  Country: US (occurrence: US)
  Receive Date: 20170215
  Receipt Date: 20170215
  Transmission Date: 20170428
  Serious: Yes (Hospitalization)
  Sender: FDA-Public Use
  Company Number: None

PATIENT
  Sex: Male

DRUGS (2)
  1. MORPHINE SULFATE SR [Suspect]
     Active Substance: MORPHINE SULFATE
  2. MORPHINE IR [Suspect]
     Active Substance: MORPHINE

REACTIONS (6)
  - Anaemia [None]
  - Hyponatraemia [None]
  - Gastrooesophageal reflux disease [None]
  - Benign prostatic hyperplasia [None]
  - Depressed level of consciousness [None]
  - Leukocytosis [None]

NARRATIVE: CASE EVENT DATE: 20150416
